FAERS Safety Report 23960820 (Version 1)
Quarter: 2024Q2

REPORT INFORMATION
  Report Type: Spontaneous
  Country: CA (occurrence: CA)
  Receive Date: 20240611
  Receipt Date: 20240611
  Transmission Date: 20240715
  Serious: Yes (Hospitalization, Other)
  Sender: FDA-Public Use
  Company Number: None

PATIENT
  Age: 88 Year
  Sex: Male

DRUGS (5)
  1. LEVETIRACETAM [Suspect]
     Active Substance: LEVETIRACETAM
     Indication: Partial seizures
     Dosage: 750 MG, 2 TIMES PER DAY
  2. LEVETIRACETAM [Suspect]
     Active Substance: LEVETIRACETAM
     Dosage: 3000 MG, ONCE PER DAY (ESCALATION)
  3. VALPROIC ACID [Suspect]
     Active Substance: VALPROIC ACID
     Indication: Partial seizures
     Dosage: 1000 MG, ONCE PER DAY
  4. VALPROIC ACID [Suspect]
     Active Substance: VALPROIC ACID
     Dosage: UNK, UNK, REDUCED
  5. CLOBAZAM [Suspect]
     Active Substance: CLOBAZAM
     Indication: Partial seizures
     Dosage: 30 MG, ONCE PER DAY

REACTIONS (3)
  - Fall [Recovering/Resolving]
  - Gait disturbance [Recovering/Resolving]
  - Delirium [Recovering/Resolving]
